FAERS Safety Report 9167719 (Version 1)
Quarter: 2013Q1

REPORT INFORMATION
  Report Type: Spontaneous
  Country: CN (occurrence: None)
  Receive Date: 20130307
  Receipt Date: 20130307
  Transmission Date: 20140127
  Serious: Yes (Other)
  Sender: FDA-Public Use
  Company Number: VAL_01451_2013

PATIENT
  Age: 91 Year
  Sex: Female
  Weight: 56 kg

DRUGS (3)
  1. LOTENSIN [Suspect]
     Dosage: (5 MG QD ORAL)
     Route: 048
     Dates: start: 20100428, end: 20100512
  2. FENOFIBRATE (FENOFIBRATE) (FENOFIBRATE) [Suspect]
     Dosage: (DF)
     Dates: start: 20100428, end: 20100512
  3. IBUPROFEN (IBUPROFEN) [Suspect]
     Dosage: (DF ORAL)
     Route: 048
     Dates: start: 20100428, end: 20100512

REACTIONS (1)
  - Rhabdomyolysis [None]
